FAERS Safety Report 17813889 (Version 1)
Quarter: 2020Q2

REPORT INFORMATION
  Report Type: Report from Study
  Country: ZA (occurrence: ZA)
  Receive Date: 20200521
  Receipt Date: 20200521
  Transmission Date: 20200714
  Serious: Yes (Other)
  Sender: FDA-Public Use
  Company Number: ZA-STI PHARMA LLC-2084079

PATIENT
  Age: 41 Year
  Sex: Male

DRUGS (10)
  1. AMINOSALICYLIC ACID [Suspect]
     Active Substance: AMINOSALICYLIC ACID
     Route: 048
     Dates: start: 20180709
  2. ERTAPENEM. [Suspect]
     Active Substance: ERTAPENEM SODIUM
     Route: 030
     Dates: start: 20180709
  3. DELAMANID [Suspect]
     Active Substance: DELAMANID
     Route: 048
     Dates: start: 20181010, end: 20181114
  4. EMTRICITABINE [Suspect]
     Active Substance: EMTRICITABINE
  5. AMOXICILLIN AND CLAVULANATE POTASSIUM [Suspect]
     Active Substance: AMOXICILLIN\CLAVULANATE POTASSIUM
     Dates: start: 20180709
  6. BEDAQUILINE [Suspect]
     Active Substance: BEDAQUILINE
     Dates: start: 20181010
  7. ETHAMBUTOL HYDROCHLORIDE. [Suspect]
     Active Substance: ETHAMBUTOL HYDROCHLORIDE
     Route: 048
     Dates: start: 20180709
  8. LOPINAVIR-RITONAVIR [Suspect]
     Active Substance: LOPINAVIR\RITONAVIR
  9. CLOFAZIMINE [Suspect]
     Active Substance: CLOFAZIMINE
     Route: 048
     Dates: start: 20180709
  10. DILOXANIDE FUROATE, TINIDAZOLE [Suspect]
     Active Substance: DILOXANIDE FUROATE\TINIDAZOLE

REACTIONS (1)
  - Vomiting [Recovered/Resolved]

NARRATIVE: CASE EVENT DATE: 20181114
